APPROVED DRUG PRODUCT: CHLORZOXAZONE
Active Ingredient: CHLORZOXAZONE
Strength: 375MG
Dosage Form/Route: TABLET;ORAL
Application: A212743 | Product #002 | TE Code: AB
Applicant: PH HEALTH LTD
Approved: Apr 29, 2021 | RLD: No | RS: No | Type: RX